FAERS Safety Report 8369260-9 (Version None)
Quarter: 2012Q2

REPORT INFORMATION
  Report Type: 
  Country: None (occurrence: None)
  Receive Date: 20120518
  Receipt Date: 20120508
  Transmission Date: 20120825
  Serious: Yes (Death, Hospitalization)
  Sender: FDA-Public Use
  Company Number: PHHO2007FR15225

PATIENT
  Sex: Female
  Weight: 55 kg

DRUGS (7)
  1. DILTIAZEM [Concomitant]
     Indication: HYPERTENSION
     Dosage: 300 MG, QD
  2. TASIGNA [Suspect]
     Indication: CHRONIC MYELOID LEUKAEMIA
     Dosage: 800MG DAILY
     Route: 048
     Dates: start: 20070814, end: 20070907
  3. VALSARTAN [Concomitant]
     Indication: HYPERTENSION
     Dosage: 160 MG, QD
  4. HYDROCHLOROTHIAZIDE [Concomitant]
     Indication: HYPERTENSION
     Dosage: 12.5 MG, QD
  5. FLUINDIONE [Concomitant]
     Indication: PULMONARY EMBOLISM
     Dosage: 20 MG, QD
  6. TASIGNA [Suspect]
     Dosage: NO TREATMENT
     Dates: start: 20070908, end: 20070918
  7. TASIGNA [Suspect]
     Dosage: 400MG DAILY
     Route: 048
     Dates: start: 20070919, end: 20070923

REACTIONS (15)
  - LUNG INFECTION [None]
  - BLAST CRISIS IN MYELOGENOUS LEUKAEMIA [None]
  - FEBRILE INFECTION [None]
  - MYOCARDIAL ISCHAEMIA [None]
  - DRUG INEFFECTIVE [None]
  - ARRHYTHMIA SUPRAVENTRICULAR [None]
  - CARDIAC DISORDER [None]
  - BLAST CELL COUNT INCREASED [None]
  - ESCHERICHIA URINARY TRACT INFECTION [None]
  - WHITE BLOOD CELL COUNT INCREASED [None]
  - NEUTROPENIA [None]
  - TACHYCARDIA [None]
  - ASTHENIA [None]
  - NEOPLASM MALIGNANT [None]
  - ATRIAL FIBRILLATION [None]
